FAERS Safety Report 4451217-1 (Version None)
Quarter: 2004Q3

REPORT INFORMATION
  Report Type: 
  Country: None (occurrence: None)
  Receive Date: 20040914
  Receipt Date: 20040825
  Transmission Date: 20050211
  Serious: Yes (Disabling)
  Sender: FDA-Public Use
  Company Number: WAES 0310USA00162

PATIENT
  Age: 67 Year
  Sex: Male

DRUGS (11)
  1. COZAAR [Suspect]
     Indication: ESSENTIAL HYPERTENSION
     Dosage: SEE IMAGE
     Route: 048
     Dates: start: 20000710, end: 20010527
  2. COZAAR [Suspect]
     Indication: ESSENTIAL HYPERTENSION
     Dosage: SEE IMAGE
     Route: 048
     Dates: start: 20010528, end: 20010708
  3. COZAAR [Suspect]
     Indication: ESSENTIAL HYPERTENSION
     Dosage: SEE IMAGE
     Route: 048
     Dates: start: 20010709, end: 20011125
  4. COZAAR [Suspect]
     Indication: ESSENTIAL HYPERTENSION
     Dosage: SEE IMAGE
     Route: 048
     Dates: start: 20011126, end: 20020114
  5. COZAAR [Suspect]
     Indication: ESSENTIAL HYPERTENSION
     Dosage: SEE IMAGE
     Route: 048
     Dates: start: 20020115, end: 20021125
  6. COZAAR [Suspect]
     Indication: ESSENTIAL HYPERTENSION
     Dosage: SEE IMAGE
     Route: 048
     Dates: start: 20021126, end: 20040108
  7. COZAAR [Suspect]
     Indication: ESSENTIAL HYPERTENSION
     Dosage: SEE IMAGE
     Route: 048
     Dates: start: 20040109
  8. ALPRENOLOL HYDROCHLORIDE [Concomitant]
  9. BENZBROMARONE [Concomitant]
  10. DISPYRAMIDE PHOSPHATE [Concomitant]
  11. MEXAZOLAM [Concomitant]

REACTIONS (1)
  - MACULAR DEGENERATION [None]
